APPROVED DRUG PRODUCT: TODAY
Active Ingredient: NONOXYNOL-9
Strength: 1GM
Dosage Form/Route: SPONGE;VAGINAL
Application: N018683 | Product #001
Applicant: MAYER LABORATORIES INC
Approved: Apr 1, 1983 | RLD: Yes | RS: No | Type: DISCN